FAERS Safety Report 6321957-8 (Version None)
Quarter: 2009Q3

REPORT INFORMATION
  Report Type: 
  Country: None (occurrence: None)
  Receive Date: 20090824
  Receipt Date: 20090818
  Transmission Date: 20100115
  Serious: Yes (Life-Threatening)
  Sender: FDA-Public Use
  Company Number: JP-EISAI INC.-E2020-04705-SPO-JP

PATIENT
  Sex: Female
  Weight: 42.5 kg

DRUGS (12)
  1. ARICEPT [Suspect]
     Indication: DEMENTIA ALZHEIMER'S TYPE
     Route: 048
     Dates: start: 20081104, end: 20081110
  2. ARICEPT [Suspect]
     Route: 048
     Dates: start: 20081111, end: 20090507
  3. ITOROL [Concomitant]
     Indication: ANGINA PECTORIS
     Route: 048
     Dates: start: 20030430
  4. RISPERDAL [Concomitant]
     Indication: DELUSIONAL DISORDER, UNSPECIFIED TYPE
     Route: 048
     Dates: start: 20060606, end: 20081013
  5. RISPERDAL [Concomitant]
     Route: 048
     Dates: start: 20060606, end: 20081013
  6. RISPERDAL [Concomitant]
     Route: 048
     Dates: start: 20081118, end: 20090309
  7. LULLAN (PEROSPIRONE HYDROCHLORIDE HYDRATE) [Concomitant]
     Indication: DELUSIONAL DISORDER, UNSPECIFIED TYPE
     Route: 048
     Dates: start: 20081014, end: 20081117
  8. LULLAN (PEROSPIRONE HYDROCHLORIDE HYDRATE) [Concomitant]
     Route: 048
     Dates: start: 20090310
  9. BUFFERIN [Concomitant]
     Indication: ANGINA PECTORIS
     Route: 048
     Dates: start: 20010221
  10. SIGMART [Concomitant]
     Indication: ANGINA PECTORIS
     Route: 048
     Dates: start: 20030430
  11. KAMAG [Concomitant]
     Indication: CONSTIPATION
     Route: 048
     Dates: start: 20070213
  12. PURSENNID [Concomitant]
     Indication: CONSTIPATION
     Route: 048
     Dates: start: 20010221

REACTIONS (1)
  - SYNCOPE [None]
